FAERS Safety Report 5057213-8 (Version None)
Quarter: 2006Q3

REPORT INFORMATION
  Report Type: 
  Country: None (occurrence: None)
  Receive Date: 20060721
  Receipt Date: 20050614
  Transmission Date: 20061208
  Serious: No
  Sender: FDA-Public Use
  Company Number: US-GLAXOSMITHKLINE-A0562642A

PATIENT
  Sex: Female

DRUGS (11)
  1. AVANDIA [Suspect]
     Dosage: 4MG PER DAY
     Route: 048
     Dates: start: 20050201
  2. PREMARIN [Concomitant]
  3. GLUCOPHAGE [Concomitant]
  4. ZYRTEC [Concomitant]
  5. PRINIVIL [Concomitant]
  6. DARVOCET [Concomitant]
  7. NEXIUM [Concomitant]
  8. GLYCILAX [Concomitant]
  9. XANAX [Concomitant]
  10. CELEXA [Concomitant]
  11. SEROQUEL [Concomitant]

REACTIONS (2)
  - DYSPEPSIA [None]
  - GASTROOESOPHAGEAL REFLUX DISEASE [None]
